FAERS Safety Report 6469753-5 (Version None)
Quarter: 2009Q4

REPORT INFORMATION
  Report Type: 
  Country: None (occurrence: None)
  Receive Date: 20091203
  Receipt Date: 20080613
  Transmission Date: 20100525
  Serious: Yes (Other)
  Sender: FDA-Public Use
  Company Number: GR-LLY01-GR200707000499

PATIENT
  Sex: Male
  Weight: 75 kg

DRUGS (3)
  1. DULOXETINE HYDROCHLORIDE [Suspect]
     Indication: OSTEOARTHRITIS
     Dosage: UNK, UNKNOWN
     Route: 048
     Dates: start: 20070626, end: 20070702
  2. ZYLORIC [Concomitant]
     Indication: BLOOD URIC ACID
     Dosage: 100 MG, UNK
     Dates: start: 19870101
  3. CRESTOR [Concomitant]
     Indication: BLOOD CHOLESTEROL INCREASED
     Dosage: 20 MG, UNK
     Dates: start: 20050601

REACTIONS (1)
  - DRUG INTOLERANCE [None]
